FAERS Safety Report 5514924-5 (Version None)
Quarter: 2007Q4

REPORT INFORMATION
  Report Type: 
  Country: None (occurrence: None)
  Receive Date: 20071113
  Receipt Date: 20061005
  Transmission Date: 20080405
  Serious: No
  Sender: FDA-Public Use
  Company Number: A0622662A

PATIENT
  Age: 84 Year
  Sex: Male

DRUGS (8)
  1. COREG [Suspect]
     Dosage: 6.25MG TWICE PER DAY
     Route: 048
     Dates: start: 20060601
  2. ISOSORBID [Concomitant]
  3. SODIUM POLYSTYRENE [Concomitant]
  4. WARFARIN SODIUM [Concomitant]
  5. SODIUM BICARBONATE [Concomitant]
  6. FLOMAX [Concomitant]
  7. SYNTHROID [Concomitant]
  8. NEXIUM [Concomitant]

REACTIONS (6)
  - ANOREXIA [None]
  - ASTHENIA [None]
  - FALL [None]
  - GAIT DISTURBANCE [None]
  - HYPOTENSION [None]
  - WEIGHT DECREASED [None]
